FAERS Safety Report 22604389 (Version 1)
Quarter: 2023Q2

REPORT INFORMATION
  Report Type: Spontaneous
  Country: US (occurrence: US)
  Receive Date: 20230615
  Receipt Date: 20230615
  Transmission Date: 20230722
  Serious: Yes (Other)
  Sender: FDA-Public Use
  Company Number: US-STRIDES ARCOLAB LIMITED-2023SP007921

PATIENT
  Age: 5 Month
  Sex: Male

DRUGS (9)
  1. PREDNISOLONE [Suspect]
     Active Substance: PREDNISOLONE
     Indication: Congenital fibrosarcoma
     Dosage: UNK
     Route: 065
  2. DOXORUBICIN [Suspect]
     Active Substance: DOXORUBICIN
     Indication: Congenital fibrosarcoma
     Dosage: UNK, CYCLICAL, SIX ALTERNATING CYCLES OF VAC REGIMEN WITH IDE REGIMEN
     Route: 065
  3. ETOPOSIDE [Suspect]
     Active Substance: ETOPOSIDE
     Indication: Congenital fibrosarcoma
     Dosage: UNK, CYCLICAL, SIX ALTERNATING CYCLES OF VAC REGIMEN WITH IDE REGIMEN
     Route: 065
  4. VINCRISTINE [Suspect]
     Active Substance: VINCRISTINE
     Indication: Congenital fibrosarcoma
     Dosage: UNK
     Route: 065
  5. VINCRISTINE [Suspect]
     Active Substance: VINCRISTINE
     Dosage: UNK, CYCLICAL, SIX ALTERNATING CYCLES OF VAC REGIMEN WITH IDE REGIMEN
     Route: 065
  6. SIROLIMUS [Suspect]
     Active Substance: SIROLIMUS
     Indication: Congenital fibrosarcoma
     Dosage: UNK
     Route: 065
  7. DACTINOMYCIN [Suspect]
     Active Substance: DACTINOMYCIN
     Indication: Congenital fibrosarcoma
     Dosage: UNK, CYCLICAL, SIX ALTERNATING CYCLES OF VAC REGIMEN WITH IDE REGIMEN
     Route: 065
  8. CYCLOPHOSPHAMIDE [Suspect]
     Active Substance: CYCLOPHOSPHAMIDE
     Indication: Congenital fibrosarcoma
     Dosage: UNK, CYCLICAL, SIX ALTERNATING CYCLES OF VAC REGIMEN WITH IDE REGIMEN
     Route: 065
  9. IFOSFAMIDE [Suspect]
     Active Substance: IFOSFAMIDE
     Indication: Congenital fibrosarcoma
     Dosage: UNK, CYCLICAL, SIX ALTERNATING CYCLES OF VAC REGIMEN WITH IDE REGIMEN
     Route: 065

REACTIONS (3)
  - Drug ineffective [Unknown]
  - Neoplasm progression [Unknown]
  - Off label use [Unknown]
